FAERS Safety Report 18922754 (Version 1)
Quarter: 2021Q1

REPORT INFORMATION
  Report Type: Spontaneous
  Country: US (occurrence: US)
  Receive Date: 20210219
  Receipt Date: 20210219
  Transmission Date: 20210420
  Serious: Yes (Hospitalization, Disabling)
  Sender: FDA-Public Use
  Company Number: None

PATIENT
  Age: 61 Year
  Sex: Female
  Weight: 80.1 kg

DRUGS (7)
  1. WELBUTERIN [Concomitant]
  2. MULTIVITAMIN [Concomitant]
     Active Substance: VITAMINS
  3. GABAPENTIN. [Concomitant]
     Active Substance: GABAPENTIN
  4. XANAX [Suspect]
     Active Substance: ALPRAZOLAM
     Indication: POST-TRAUMATIC STRESS DISORDER
     Route: 048
  5. BLADDER STIMULATION DEVICE [Concomitant]
  6. KETAMIN NASAL SPRAY [Concomitant]
  7. MAGNESIUM [Concomitant]
     Active Substance: MAGNESIUM

REACTIONS (11)
  - Psychotic disorder [None]
  - Anxiety [None]
  - Illness [None]
  - Disability [None]
  - Inflammation [None]
  - Stress [None]
  - Cognitive disorder [None]
  - Depression [None]
  - Partner stress [None]
  - Suicide attempt [None]
  - Pain [None]

NARRATIVE: CASE EVENT DATE: 19890707
